FAERS Safety Report 7557463-2 (Version None)
Quarter: 2011Q2

REPORT INFORMATION
  Report Type: 
  Country: None (occurrence: None)
  Receive Date: 20110620
  Receipt Date: 20110613
  Transmission Date: 20111010
  Serious: Yes (Hospitalization, Disabling, Other)
  Sender: FDA-Public Use
  Company Number: GB-TEVA-286826ISR

PATIENT
  Age: 15 Year
  Sex: Female
  Weight: 40.3 kg

DRUGS (1)
  1. VALPROIC ACID [Suspect]
     Indication: EPILEPSY
     Dosage: 1000 MILLIGRAM;
     Dates: start: 19970101, end: 20110301

REACTIONS (2)
  - HYPOPHOSPHATAEMIA [None]
  - RENAL TUBULAR ACIDOSIS [None]
